FAERS Safety Report 11355246 (Version 1)
Quarter: 2015Q3

REPORT INFORMATION
  Report Type: Spontaneous
  Country: US (occurrence: US)
  Receive Date: 20150807
  Receipt Date: 20150807
  Transmission Date: 20151125
  Serious: Yes (Other)
  Sender: FDA-Public Use
  Company Number: US-AMGEN-USASP2015078247

PATIENT
  Sex: Male

DRUGS (1)
  1. BLINCYTO [Suspect]
     Active Substance: BLINATUMOMAB
     Indication: PRODUCT USED FOR UNKNOWN INDICATION
     Dosage: 9 MUG, UNK
     Route: 065

REACTIONS (3)
  - Neurotoxicity [Not Recovered/Not Resolved]
  - Confusional state [Not Recovered/Not Resolved]
  - CSF white blood cell count positive [Unknown]

NARRATIVE: CASE EVENT DATE: 2015
